FAERS Safety Report 7940793-X (Version None)
Quarter: 2011Q4

REPORT INFORMATION
  Report Type: 
  Country: None (occurrence: None)
  Receive Date: 20111128
  Receipt Date: 20111123
  Transmission Date: 20120403
  Serious: Yes (Other)
  Sender: FDA-Public Use
  Company Number: US-PFIZER INC-2011271208

PATIENT
  Sex: Female
  Weight: 63.492 kg

DRUGS (5)
  1. SEASONIQUE [Concomitant]
     Indication: CONTRACEPTION
     Dosage: UNK
  2. LYRICA [Suspect]
     Indication: CHRONIC FATIGUE SYNDROME
  3. PATANASE [Concomitant]
     Indication: HYPERSENSITIVITY
     Dosage: UNK
  4. FLONASE [Concomitant]
     Indication: HYPERSENSITIVITY
     Dosage: UNK
  5. LYRICA [Suspect]
     Indication: FIBROMYALGIA
     Dosage: UNK, 1X/DAY
     Route: 048
     Dates: start: 20111027

REACTIONS (3)
  - BLISTER [None]
  - SKIN EXFOLIATION [None]
  - SKIN IRRITATION [None]
